FAERS Safety Report 20034685 (Version 1)
Quarter: 2021Q4

REPORT INFORMATION
  Report Type: Spontaneous
  Country: DE (occurrence: DE)
  Receive Date: 20211104
  Receipt Date: 20211104
  Transmission Date: 20220303
  Serious: Yes (Hospitalization)
  Sender: FDA-Public Use
  Company Number: DE-ADRED-05859-01

PATIENT
  Age: 83 Year
  Sex: Female

DRUGS (11)
  1. TORSEMIDE [Suspect]
     Active Substance: TORSEMIDE
     Indication: Product used for unknown indication
     Dosage: 10 MILLIGRAM, 1-0.5-0-0
     Route: 048
  2. HYDROCHLOROTHIAZIDE\TELMISARTAN [Suspect]
     Active Substance: HYDROCHLOROTHIAZIDE\TELMISARTAN
     Indication: Product used for unknown indication
     Dosage: 12.5|80 MG, 1-0-0-0, TABLETTEN
     Route: 048
  3. AMLODIPINE [Suspect]
     Active Substance: AMLODIPINE BESYLATE
     Indication: Product used for unknown indication
     Dosage: 5 MILLIGRAM, QD,  0-0-1-0
     Route: 048
  4. EDOXABAN [Suspect]
     Active Substance: EDOXABAN
     Indication: Product used for unknown indication
     Dosage: 60 MILLIGRAM, PAUSED SINCE YESTERDAY, TABLETS
     Route: 048
  5. VIGANTOL                           /00318501/ [Concomitant]
     Dosage: 1000 IU INTERNATIONAL UNIT(S), 1-0-0-0, CAPSULES
     Route: 048
  6. OPIPRAMOL [Concomitant]
     Active Substance: OPIPRAMOL
     Dosage: 50 MILLIGRAM, 1-0-1-0, TABLETS
     Route: 048
  7. LEVOTHYROXINE [Concomitant]
     Active Substance: LEVOTHYROXINE
     Dosage: 75 MICROGRAM, 1-0-0-0, TABLET
     Route: 048
  8. GLYCOPYRRONIUM\INDACATEROL [Concomitant]
     Active Substance: GLYCOPYRRONIUM\INDACATEROL
     Dosage: 85|43 ?G, 1-0-0-0, POWDER CAPSULES2, 1-1-1-0, METERED DOSE AEROSOL
     Route: 055
  9. ALBUTEROL [Concomitant]
     Active Substance: ALBUTEROL
     Dosage: UNK,1-1-1-0, DOSIERAEROSOL
     Route: 055
  10. METOPROLOL [Concomitant]
     Active Substance: METOPROLOL
     Dosage: 95 MILLIGRAM, BID, 1-0-1-0, RETARD-TABLETTEN
     Route: 048
  11. OMEP                               /00661201/ [Concomitant]
     Dosage: 40 MILLIGRAM, QD, 1-0-0-0
     Route: 048

REACTIONS (4)
  - General physical health deterioration [Recovering/Resolving]
  - Haematochezia [Recovering/Resolving]
  - Abdominal pain [Recovering/Resolving]
  - Constipation [Recovering/Resolving]
